FAERS Safety Report 11430347 (Version 1)
Quarter: 2015Q3

REPORT INFORMATION
  Report Type: Spontaneous
  Country: US (occurrence: US)
  Receive Date: 20150828
  Receipt Date: 20150828
  Transmission Date: 20151125
  Serious: No
  Sender: FDA-Public Use
  Company Number: US-ROCHE-1156266

PATIENT
  Sex: Male

DRUGS (2)
  1. RIBAVIRIN. [Suspect]
     Active Substance: RIBAVIRIN
     Indication: HEPATITIS C
     Dosage: DIVIDED DOSES
     Route: 048
     Dates: start: 20121114
  2. PEGASYS [Suspect]
     Active Substance: PEGINTERFERON ALFA-2A
     Indication: HEPATITIS C
     Route: 058
     Dates: start: 20121114

REACTIONS (8)
  - Nausea [Unknown]
  - Wound [Unknown]
  - Diarrhoea [Unknown]
  - Chills [Unknown]
  - Accidental exposure to product [Unknown]
  - Vertigo [Unknown]
  - Vomiting [Unknown]
  - Medication error [Unknown]
